FAERS Safety Report 10225339 (Version 1)
Quarter: 2014Q1

REPORT INFORMATION
  Report Type: Spontaneous
  Country: US (occurrence: None)
  Receive Date: 20140306
  Receipt Date: 20140306
  Transmission Date: 20141002
  Serious: Yes (Other)
  Sender: FDA-Public Use
  Company Number: 163-21880-13050761

PATIENT
  Age: 66 Year
  Sex: Male

DRUGS (19)
  1. REVLIMID (LENALIDOMIDE) (5 MILLIGRAM, CAPSULES) [Suspect]
     Indication: PLASMA CELL MYELOMA
     Route: 048
     Dates: start: 20101224
  2. NEVANAC 0.1% (NEPAFENAC) [Concomitant]
  3. BESIVANCE 0.6% (BESIFLOXACIN) [Concomitant]
  4. DEXAMETHASONE (DEXAMETHASONE) [Concomitant]
  5. NEXIUM (ESOMEPRAZOLE) [Concomitant]
  6. LEVOTHYROXINE (LEVOTHYROXINE) [Concomitant]
  7. SULFAMETH/TRIMETHOPRIM (BACTRIM) [Concomitant]
  8. ACYCLOVIR (ACICLOVIR) [Concomitant]
  9. WARFARIN (WARFARIN) [Concomitant]
  10. PRILOSEC (OMEPRAZOLE) [Concomitant]
  11. OXYCODONE (OXYCODONE) [Concomitant]
  12. OXYCONTIN CR (OXYCODONE HYDROCHLORIDE) [Concomitant]
  13. NORVASC (AMLODIPINE BESILATE) [Concomitant]
  14. FUROSEMIDE (FUROSEMIDE) [Concomitant]
  15. METOPROLOL ER (METOPROLOL) [Concomitant]
  16. CLARITIN-D 24 HOUR (NARINE REPETABS) [Concomitant]
  17. CLARITIN (LORATADINE) [Concomitant]
  18. MUCINEX ER (GUAIFENESIN) [Concomitant]
  19. EPLERENONE (EPLERENONE) [Concomitant]

REACTIONS (1)
  - Cardiac failure [None]
